FAERS Safety Report 8524647-6 (Version None)
Quarter: 2012Q3

REPORT INFORMATION
  Report Type: 
  Country: None (occurrence: None)
  Receive Date: 20120720
  Receipt Date: 20120530
  Transmission Date: 20120928
  Serious: Yes (Other)
  Sender: FDA-Public Use
  Company Number: US-009507513-1205USA04756

PATIENT

DRUGS (1)
  1. JANUVIA [Suspect]
     Route: 048

REACTIONS (3)
  - MYOCARDIAL INFARCTION [None]
  - CARDIAC STRESS TEST ABNORMAL [None]
  - PALPITATIONS [None]
